FAERS Safety Report 18392777 (Version 1)
Quarter: 2020Q4

REPORT INFORMATION
  Report Type: Spontaneous
  Country: GB (occurrence: GB)
  Receive Date: 20201016
  Receipt Date: 20201016
  Transmission Date: 20210114
  Serious: Yes (Hospitalization)
  Sender: FDA-Public Use
  Company Number: GB-JNJFOC-20201024119

PATIENT
  Age: 79 Year
  Sex: Male

DRUGS (1)
  1. RIVAROXABAN [Suspect]
     Active Substance: RIVAROXABAN
     Indication: ATRIAL FIBRILLATION
     Route: 048
     Dates: start: 20200914

REACTIONS (3)
  - Syncope [Unknown]
  - Arterial rupture [Recovered/Resolved with Sequelae]
  - Gastrointestinal pain [Unknown]

NARRATIVE: CASE EVENT DATE: 20200914
